FAERS Safety Report 6570860-7 (Version None)
Quarter: 2010Q1

REPORT INFORMATION
  Report Type: 
  Country: None (occurrence: None)
  Receive Date: 20100203
  Receipt Date: 20100203
  Transmission Date: 20100710
  Serious: Yes (Other)
  Sender: FDA-Public Use
  Company Number: None

PATIENT
  Sex: Female
  Weight: 56.6996 kg

DRUGS (3)
  1. CONCERTA [Suspect]
     Indication: ATTENTION DEFICIT/HYPERACTIVITY DISORDER
     Dosage: ONE TABLET ONCE DAILY PO
     Route: 048
     Dates: start: 20091123, end: 20100201
  2. SINGULAIR [Concomitant]
  3. PRILOSEC OTC [Concomitant]

REACTIONS (1)
  - ALOPECIA [None]
